FAERS Safety Report 22221428 (Version 1)
Quarter: 2023Q2

REPORT INFORMATION
  Report Type: Spontaneous
  Country: NL (occurrence: NL)
  Receive Date: 20230418
  Receipt Date: 20230418
  Transmission Date: 20230722
  Serious: Yes (Other)
  Sender: FDA-Public Use
  Company Number: None

PATIENT
  Sex: Male
  Weight: 86 kg

DRUGS (3)
  1. VARDENAFIL [Interacting]
     Active Substance: VARDENAFIL HYDROCHLORIDE
     Indication: Erectile dysfunction
     Dosage: BRAND NAME NOT SPECIFIED
     Route: 065
     Dates: start: 202206
  2. XARELTO [Interacting]
     Active Substance: RIVAROXABAN
     Indication: Arrhythmia
     Route: 065
     Dates: start: 20211201
  3. METOPROLOL SUCCINATE [Concomitant]
     Active Substance: METOPROLOL SUCCINATE
     Indication: Product used for unknown indication
     Dosage: METOPROLOL TABLET MGA 50MG (SUCCINATE) / BRAND NAME NOT SPECIFIED

REACTIONS (2)
  - Gastric haemorrhage [Recovering/Resolving]
  - Drug interaction [Recovering/Resolving]
